FAERS Safety Report 6647430-5 (Version None)
Quarter: 2010Q1

REPORT INFORMATION
  Report Type: 
  Country: None (occurrence: None)
  Receive Date: 20100323
  Receipt Date: 20100316
  Transmission Date: 20100710
  Serious: Yes (Other)
  Sender: FDA-Public Use
  Company Number: CA-ROCHE-691925

PATIENT
  Sex: Male

DRUGS (2)
  1. PEG-INTERFERON A-2A (RO 25-8310) [Suspect]
     Indication: HEPATITIS C
     Route: 058
     Dates: start: 20091204
  2. RIBAVIRIN [Suspect]
     Indication: HEPATITIS C
     Route: 048
     Dates: start: 20091204

REACTIONS (5)
  - CHOLELITHIASIS [None]
  - HEPATOMEGALY [None]
  - INJECTION SITE SWELLING [None]
  - PRODUCT TASTE ABNORMAL [None]
  - RASH GENERALISED [None]
